FAERS Safety Report 18595836 (Version 1)
Quarter: 2020Q4

REPORT INFORMATION
  Report Type: Spontaneous
  Country: US (occurrence: US)
  Receive Date: 20201209
  Receipt Date: 20201209
  Transmission Date: 20210114
  Serious: No
  Sender: FDA-Public Use
  Company Number: US-ELI_LILLY_AND_COMPANY-US202012000611

PATIENT
  Sex: Female

DRUGS (4)
  1. EMGALITY [Suspect]
     Active Substance: GALCANEZUMAB-GNLM
     Dosage: 120 MG, UNKNOWN
     Route: 058
     Dates: start: 202007
  2. EMGALITY [Suspect]
     Active Substance: GALCANEZUMAB-GNLM
     Dosage: 120 MG, UNKNOWN
     Route: 058
     Dates: start: 202007
  3. EMGALITY [Suspect]
     Active Substance: GALCANEZUMAB-GNLM
     Indication: MIGRAINE
     Dosage: 120 MG, UNKNOWN LOADING DOSE
     Route: 058
     Dates: start: 201911
  4. EMGALITY [Suspect]
     Active Substance: GALCANEZUMAB-GNLM
     Indication: MIGRAINE
     Dosage: 120 MG, UNKNOWN LOADING DOSE
     Route: 058
     Dates: start: 201911

REACTIONS (7)
  - Inappropriate schedule of product administration [Unknown]
  - Abdominal discomfort [Unknown]
  - Migraine [Unknown]
  - Alice in wonderland syndrome [Unknown]
  - Injection site pain [Unknown]
  - Hallucination [Unknown]
  - Constipation [Unknown]

NARRATIVE: CASE EVENT DATE: 2019
